FAERS Safety Report 13067855 (Version 1)
Quarter: 2016Q4

REPORT INFORMATION
  Report Type: Spontaneous
  Country: US (occurrence: US)
  Receive Date: 20161228
  Receipt Date: 20161228
  Transmission Date: 20170207
  Serious: Yes (Other)
  Sender: FDA-Public Use
  Company Number: US-PROCTER_AND_GAMBLE-GS16154569

PATIENT

DRUGS (1)
  1. VICKS VAPORUB [Suspect]
     Active Substance: CAMPHOR (SYNTHETIC)\EUCALYPTUS OIL\MENTHOL
     Dosage: EATING VAPORUB FOR ABOUT 3 YRS
     Route: 048

REACTIONS (4)
  - Drug abuse [Unknown]
  - Exposure via ingestion [Unknown]
  - Intentional product use issue [None]
  - Product use issue [Unknown]
